FAERS Safety Report 10347553 (Version 3)
Quarter: 2016Q1

REPORT INFORMATION
  Report Type: Spontaneous
  Country: US (occurrence: US)
  Receive Date: 20140729
  Receipt Date: 20160129
  Transmission Date: 20160525
  Serious: Yes (Hospitalization)
  Sender: FDA-Public Use
  Company Number: US-ASTRAZENECA-2014SE53220

PATIENT
  Age: 43 Year
  Sex: Male
  Weight: 81.6 kg

DRUGS (8)
  1. PULMICORT FLEXHALER [Suspect]
     Active Substance: BUDESONIDE
     Indication: ALLERGY TO ANIMAL
     Dosage: 180 MCG, 225 MG,1 PUFF, TWO TIMES A DAY
     Route: 055
     Dates: start: 2008
  2. ATORVASTATIN [Concomitant]
     Active Substance: ATORVASTATIN
     Indication: CARDIAC DISORDER
     Route: 048
     Dates: start: 20140711
  3. PULMICORT FLEXHALER [Suspect]
     Active Substance: BUDESONIDE
     Indication: ALLERGY TO ANIMAL
     Dosage: 180 MCG,1 PUFF, TWO TIMES A DAY
     Route: 055
     Dates: start: 2007
  4. LISINOPRIL. [Concomitant]
     Active Substance: LISINOPRIL
     Indication: CARDIAC DISORDER
     Route: 048
     Dates: start: 20140711
  5. CARVEDILOL. [Concomitant]
     Active Substance: CARVEDILOL
     Indication: CARDIAC DISORDER
     Route: 048
     Dates: start: 20140711
  6. PROAIR HFA [Concomitant]
     Active Substance: ALBUTEROL SULFATE
     Indication: RESPIRATORY DISORDER
     Dosage: 2 PUFFS EVERY 2-6 PRN
     Route: 055
     Dates: start: 2007
  7. FUROSEMIDE. [Concomitant]
     Active Substance: FUROSEMIDE
     Indication: CARDIAC DISORDER
     Dosage: 20MG 1/2 TABLET DAILY
     Route: 048
     Dates: start: 20140711
  8. ASPIRIN. [Concomitant]
     Active Substance: ASPIRIN
     Indication: CARDIAC DISORDER
     Route: 048
     Dates: start: 20140711

REACTIONS (9)
  - Loss of consciousness [Unknown]
  - Product use issue [Unknown]
  - Asthma [Unknown]
  - Myocardial necrosis marker increased [Unknown]
  - Heart rate increased [Unknown]
  - Respiratory failure [Unknown]
  - Dyspnoea [Unknown]
  - Off label use [Unknown]
  - Device malfunction [Unknown]

NARRATIVE: CASE EVENT DATE: 2007
